FAERS Safety Report 8861678 (Version 1)
Quarter: 2012Q4

REPORT INFORMATION
  Report Type: 
  Country: US (occurrence: None)
  Receive Date: 20121025
  Receipt Date: 20121025
  Transmission Date: 20130627
  Serious: Yes (Hospitalization)
  Sender: FDA-Public Use
  Company Number: None

PATIENT
  Sex: Female
  Weight: 72 kg

DRUGS (2)
  1. CYTARABINE [Suspect]
     Dosage: 1288 mg
     Dates: end: 20120924
  2. DAUNORUBICIN [Suspect]
     Dosage: 331.2 mg
     Dates: end: 20120920

REACTIONS (4)
  - Chills [None]
  - Sepsis [None]
  - Bacterial infection [None]
  - Blood culture positive [None]
